FAERS Safety Report 5700154-0 (Version None)
Quarter: 2008Q2

REPORT INFORMATION
  Report Type: 
  Country: None (occurrence: None)
  Receive Date: 20080410
  Receipt Date: 20080407
  Transmission Date: 20081010
  Serious: Yes (Hospitalization)
  Sender: FDA-Public Use
  Company Number: PHHO2008DE02179

PATIENT
  Age: 51 Year
  Sex: Male
  Weight: 103 kg

DRUGS (6)
  1. DIOVAN [Concomitant]
     Indication: HYPERTENSION
  2. FUROSEMIDE [Concomitant]
     Indication: OEDEMA
  3. TOTAM [Concomitant]
     Indication: OEDEMA
  4. CALCIUM [Concomitant]
     Indication: METASTASES TO BONE
  5. VITAMIN D [Concomitant]
     Indication: METASTASES TO BONE
  6. ZOLEDRONIC ACID [Suspect]
     Indication: METASTASES TO BONE
     Dosage: 4MG EVERY 3 MONTHS
     Dates: start: 20050228

REACTIONS (4)
  - MUSCULOSKELETAL CHEST PAIN [None]
  - OSTEOMYELITIS [None]
  - RIB FRACTURE [None]
  - SURGERY [None]
